FAERS Safety Report 6128680-3 (Version None)
Quarter: 2009Q1

REPORT INFORMATION
  Report Type: 
  Country: None (occurrence: None)
  Receive Date: 20090323
  Receipt Date: 20090312
  Transmission Date: 20090719
  Serious: Yes (Other)
  Sender: FDA-Public Use
  Company Number: US-JNJCH-2009006973

PATIENT
  Age: 71 Year
  Sex: Male
  Weight: 128.8 kg

DRUGS (3)
  1. PURELL WITH ALOE [Suspect]
     Indication: ANTIBIOTIC PROPHYLAXIS
     Dosage: TEXT:UNSPECIFIED ONCE
     Route: 061
     Dates: start: 20090308, end: 20090309
  2. DRUG, UNSPECIFIED [Concomitant]
     Indication: DRUG USE FOR UNKNOWN INDICATION
     Dosage: TEXT:UNKNOWN
     Route: 065
  3. FLUTICASONE PROPIONATE [Concomitant]
     Indication: DRUG USE FOR UNKNOWN INDICATION
     Dosage: TEXT:UNKNOWN
     Route: 065

REACTIONS (2)
  - BURNS SECOND DEGREE [None]
  - OEDEMA PERIPHERAL [None]
